FAERS Safety Report 14194925 (Version 1)
Quarter: 2017Q4

REPORT INFORMATION
  Report Type: Spontaneous
  Country: US (occurrence: US)
  Receive Date: 20171116
  Receipt Date: 20171116
  Transmission Date: 20180321
  Serious: No
  Sender: FDA-Public Use
  Company Number: None

PATIENT
  Age: 49 Year
  Weight: 56 kg

DRUGS (5)
  1. HYDROCORTISON OINTMENT BY FAGRO [Suspect]
     Active Substance: HYDROCORTISONE
     Indication: ECZEMA
     Route: 061
  2. BETANMETASON BIJ SANDOZ [Suspect]
     Active Substance: BETAMETHASONE
  3. HYDROCORTISON OINTMENT BY FAGRO [Suspect]
     Active Substance: HYDROCORTISONE
     Indication: RASH
     Route: 061
  4. HYDROCORTISON OINTMENT BY FAGRO [Suspect]
     Active Substance: HYDROCORTISONE
     Indication: EYE DISORDER
     Route: 061
  5. TOBRADEX [Suspect]
     Active Substance: DEXAMETHASONE\TOBRAMYCIN

REACTIONS (4)
  - Food interaction [None]
  - Condition aggravated [None]
  - Rash [None]
  - Eyelid disorder [None]

NARRATIVE: CASE EVENT DATE: 20160101
